FAERS Safety Report 15675064 (Version 2)
Quarter: 2019Q1

REPORT INFORMATION
  Report Type: Spontaneous
  Country: US (occurrence: US)
  Receive Date: 20181130
  Receipt Date: 20190121
  Transmission Date: 20190417
  Serious: No
  Sender: FDA-Public Use
  Company Number: US-PFIZER INC-2018477052

PATIENT

DRUGS (1)
  1. HETASTARCH. [Suspect]
     Active Substance: HETASTARCH
     Indication: BLOOD STEM CELL HARVEST
     Dosage: UNK

REACTIONS (2)
  - Product complaint [Unknown]
  - Drug ineffective [Unknown]
